FAERS Safety Report 15428739 (Version 1)
Quarter: 2018Q3

REPORT INFORMATION
  Report Type: Report from Study
  Country: None (occurrence: US)
  Receive Date: 20180926
  Receipt Date: 20180926
  Transmission Date: 20181010
  Serious: Yes (Other)
  Sender: FDA-Public Use
  Company Number: US-ABBVIE-18K-163-2495029-00

PATIENT
  Age: 73 Year
  Sex: Male

DRUGS (2)
  1. HUMIRA [Suspect]
     Active Substance: ADALIMUMAB
     Indication: PSORIATIC ARTHROPATHY
     Route: 058
  2. HUMIRA [Suspect]
     Active Substance: ADALIMUMAB
     Indication: PSORIASIS

REACTIONS (8)
  - Pneumonia [Not Recovered/Not Resolved]
  - Bronchitis [Not Recovered/Not Resolved]
  - Cardiac dysfunction [Unknown]
  - Hypoxia [Not Recovered/Not Resolved]
  - Oliguria [Unknown]
  - Chronic obstructive pulmonary disease [Recovering/Resolving]
  - Cataract [Unknown]
  - Myocardial infarction [Recovered/Resolved]

NARRATIVE: CASE EVENT DATE: 201707
